FAERS Safety Report 11234434 (Version 1)
Quarter: 2015Q3

REPORT INFORMATION
  Report Type: Spontaneous
  Country: IT (occurrence: IT)
  Receive Date: 20150702
  Receipt Date: 20150702
  Transmission Date: 20151125
  Serious: Yes (Life-Threatening)
  Sender: FDA-Public Use
  Company Number: IT-TEVA-574276ACC

PATIENT
  Age: 68 Year
  Sex: Female

DRUGS (4)
  1. VINCRISTINA TEVA ITALIA - 1 MG/ML SOLUZIONE INIETTABILE [Suspect]
     Active Substance: VINCRISTINE SULFATE
     Indication: CENTRAL NERVOUS SYSTEM LYMPHOMA
     Dosage: 2 MG TOTAL
     Route: 041
     Dates: start: 20150616, end: 20150616
  2. METOTRESSATO TEVA - 100 MG/ML SOLUZIONE INIETTABILE [Suspect]
     Active Substance: METHOTREXATE SODIUM
     Indication: CENTRAL NERVOUS SYSTEM LYMPHOMA
     Dosage: 5600 MG TOTAL
     Route: 041
     Dates: start: 20150616, end: 20150616
  3. PROCAPTAN [Concomitant]
     Active Substance: PERINDOPRIL ERBUMINE
     Indication: PRODUCT USED FOR UNKNOWN INDICATION
  4. NATULAN - 50 MG CAPSULE RIGIDE [Suspect]
     Active Substance: PROCARBAZINE HYDROCHLORIDE
     Indication: CENTRAL NERVOUS SYSTEM LYMPHOMA
     Dosage: 450 MG TOTAL
     Route: 048
     Dates: start: 20150616, end: 20150616

REACTIONS (2)
  - Pneumonitis [Recovering/Resolving]
  - Febrile neutropenia [Recovering/Resolving]

NARRATIVE: CASE EVENT DATE: 20150623
